FAERS Safety Report 22943561 (Version 4)
Quarter: 2023Q4

REPORT INFORMATION
  Report Type: Report from Study
  Country: US (occurrence: US)
  Receive Date: 20230914
  Receipt Date: 20231006
  Transmission Date: 20240110
  Serious: No
  Sender: FDA-Public Use
  Company Number: US-002147023-NVSC2023US196116

PATIENT
  Sex: Female

DRUGS (4)
  1. COSENTYX [Suspect]
     Active Substance: SECUKINUMAB
     Indication: Psoriasis
     Dosage: UNK
     Route: 065
  2. COSENTYX [Suspect]
     Active Substance: SECUKINUMAB
     Indication: Hidradenitis
  3. MINOCYCLINE [Suspect]
     Active Substance: MINOCYCLINE HYDROCHLORIDE
     Indication: Product used for unknown indication
     Dosage: UNK
     Route: 065
  4. DOXYCYCLINE [Suspect]
     Active Substance: DOXYCYCLINE
     Indication: Product used for unknown indication
     Dosage: UNK
     Route: 065

REACTIONS (14)
  - Flushing [Unknown]
  - Rash [Unknown]
  - Hidradenitis [Unknown]
  - Pain [Unknown]
  - Nodule [Unknown]
  - Furuncle [Unknown]
  - Fistula [Unknown]
  - Psoriasis [Unknown]
  - Erythema [Unknown]
  - Papule [Unknown]
  - Skin plaque [Unknown]
  - Skin exfoliation [Unknown]
  - Injection site haemorrhage [Unknown]
  - Therapeutic product effect incomplete [Unknown]
